FAERS Safety Report 23796368 (Version 1)
Quarter: 2024Q2

REPORT INFORMATION
  Report Type: Spontaneous
  Country: BG (occurrence: BG)
  Receive Date: 20240430
  Receipt Date: 20240430
  Transmission Date: 20240715
  Serious: Yes (Hospitalization)
  Sender: FDA-Public Use
  Company Number: BG-BoehringerIngelheim-2024-BI-019757

PATIENT
  Age: 43 Year
  Sex: Female

DRUGS (1)
  1. MELOXICAM [Suspect]
     Active Substance: MELOXICAM
     Indication: Product used for unknown indication

REACTIONS (2)
  - General physical health deterioration [Unknown]
  - Drug ineffective [Unknown]
